FAERS Safety Report 17605622 (Version 1)
Quarter: 2020Q1

REPORT INFORMATION
  Report Type: Report from Study
  Country: AU (occurrence: AU)
  Receive Date: 20200331
  Receipt Date: 20200331
  Transmission Date: 20200409
  Serious: Yes (Death, Hospitalization, Other)
  Sender: FDA-Public Use
  Company Number: AU-RECORDATI RARE DISEASES-2082140

PATIENT
  Age: 69 Year
  Sex: Male

DRUGS (2)
  1. OCTREOTIDE. [Suspect]
     Active Substance: OCTREOTIDE
  2. SIGNIFOR [Suspect]
     Active Substance: PASIREOTIDE DIASPARTATE
     Indication: CARCINOID SYNDROME
     Route: 065
     Dates: start: 2014

REACTIONS (9)
  - Circulatory collapse [Unknown]
  - Flushing [Unknown]
  - Diarrhoea [Unknown]
  - Metastatic carcinoid tumour [Fatal]
  - Loss of consciousness [Unknown]
  - Electrocardiogram QT prolonged [Unknown]
  - Therapeutic response decreased [Unknown]
  - Malignant neoplasm progression [Fatal]
  - Pruritus [Unknown]
